FAERS Safety Report 22078241 (Version 1)
Quarter: 2023Q1

REPORT INFORMATION
  Report Type: Spontaneous
  Country: US (occurrence: None)
  Receive Date: 20230308
  Receipt Date: 20230308
  Transmission Date: 20230418
  Serious: No
  Sender: FDA-Public Use
  Company Number: None

PATIENT

DRUGS (1)
  1. DROPERIDOL [Suspect]
     Active Substance: DROPERIDOL

REACTIONS (7)
  - Product lot number issue [None]
  - Physical product label issue [None]
  - Product label confusion [None]
  - Product barcode issue [None]
  - Product label issue [None]
  - Product label confusion [None]
  - Physical product label issue [None]
